FAERS Safety Report 6097030-3 (Version None)
Quarter: 2009Q1

REPORT INFORMATION
  Report Type: 
  Country: None (occurrence: None)
  Receive Date: 20090227
  Receipt Date: 20090219
  Transmission Date: 20090719
  Serious: Yes (Other)
  Sender: FDA-Public Use
  Company Number: PHHY2009AT05904

PATIENT
  Age: 85 Year
  Sex: Male

DRUGS (2)
  1. ZOMETA [Suspect]
     Indication: MULTIPLE MYELOMA
     Dosage: UNK
  2. ZOMETA [Suspect]
     Indication: PAIN

REACTIONS (1)
  - OSTEONECROSIS [None]
